FAERS Safety Report 10569410 (Version 1)
Quarter: 2014Q4

REPORT INFORMATION
  Report Type: Spontaneous
  Country: JP (occurrence: JP)
  Receive Date: 20141106
  Receipt Date: 20141106
  Transmission Date: 20150529
  Serious: Yes (Death)
  Sender: FDA-Public Use
  Company Number: JP-BAXTER-2014BAX066200

PATIENT
  Age: 83 Year
  Sex: Male

DRUGS (11)
  1. URSO [Concomitant]
     Active Substance: URSODIOL
     Indication: LUNG NEOPLASM MALIGNANT
     Route: 048
     Dates: end: 20141002
  2. THYRADIN [Concomitant]
     Active Substance: LEVOTHYROXINE
     Indication: LUNG NEOPLASM MALIGNANT
     Route: 048
     Dates: end: 20141002
  3. LASIX [Concomitant]
     Active Substance: FUROSEMIDE
     Indication: LUNG NEOPLASM MALIGNANT
     Route: 048
     Dates: end: 20141002
  4. ENTERONON-R [Concomitant]
     Active Substance: PROBIOTICS NOS
     Indication: LUNG NEOPLASM MALIGNANT
     Route: 048
     Dates: end: 20141002
  5. SELBEX [Concomitant]
     Active Substance: TEPRENONE
     Indication: LUNG NEOPLASM MALIGNANT
     Route: 048
     Dates: end: 20141002
  6. ENDOXAN [Suspect]
     Active Substance: CYCLOPHOSPHAMIDE
     Indication: OFF LABEL USE
  7. ENDOXAN [Suspect]
     Active Substance: CYCLOPHOSPHAMIDE
     Indication: INTERSTITIAL LUNG DISEASE
     Route: 048
     Dates: start: 20141001, end: 20141001
  8. KREMEZIN [Concomitant]
     Active Substance: ACTIVATED CHARCOAL
     Indication: LUNG NEOPLASM MALIGNANT
     Route: 048
     Dates: end: 20141002
  9. CILOSTAZOL. [Concomitant]
     Active Substance: CILOSTAZOL
     Indication: LUNG NEOPLASM MALIGNANT
     Route: 048
     Dates: end: 20141002
  10. PLAVIX [Concomitant]
     Active Substance: CLOPIDOGREL BISULFATE
     Indication: LUNG NEOPLASM MALIGNANT
     Route: 048
     Dates: end: 20141002
  11. FRANDOL [Concomitant]
     Active Substance: ISOSORBIDE DINITRATE
     Indication: LUNG NEOPLASM MALIGNANT
     Route: 062
     Dates: end: 20141002

REACTIONS (2)
  - Lung neoplasm malignant [Fatal]
  - Malignant neoplasm progression [Fatal]

NARRATIVE: CASE EVENT DATE: 20141002
